FAERS Safety Report 9575756 (Version 2)
Quarter: 2014Q2

REPORT INFORMATION
  Report Type: Spontaneous
  Country: US (occurrence: US)
  Receive Date: 20131001
  Receipt Date: 20140609
  Transmission Date: 20141212
  Serious: No
  Sender: FDA-Public Use
  Company Number: US-AMGEN-USASP2012059187

PATIENT
  Age: 38 Year
  Sex: Female
  Weight: 65.31 kg

DRUGS (1)
  1. PROCRIT [Suspect]
     Indication: ANAEMIA
     Dosage: 40000 UNIT/ML FOUR PACK RAR, QWK
     Route: 058
     Dates: start: 20120723

REACTIONS (1)
  - Accidental exposure to product [Recovered/Resolved]
